FAERS Safety Report 9710847 (Version 1)
Quarter: 2013Q4

REPORT INFORMATION
  Report Type: Spontaneous
  Country: US (occurrence: US)
  Receive Date: 20131126
  Receipt Date: 20131126
  Transmission Date: 20140711
  Serious: No
  Sender: FDA-Public Use
  Company Number: US-BRISTOL-MYERS SQUIBB COMPANY-19022417

PATIENT
  Age: 59 Year
  Sex: Female
  Weight: 71.65 kg

DRUGS (3)
  1. BYDUREON [Suspect]
     Indication: TYPE 2 DIABETES MELLITUS
  2. METFORMIN [Concomitant]
  3. REBIF [Concomitant]
     Indication: MULTIPLE SCLEROSIS
     Dosage: TAKES AN INJECTION EVERY OTHER DAY (THREE TIMES A WEEK

REACTIONS (3)
  - Injection site mass [Unknown]
  - Nausea [Unknown]
  - Weight decreased [Unknown]
